FAERS Safety Report 25159275 (Version 1)
Quarter: 2025Q2

REPORT INFORMATION
  Report Type: Spontaneous
  Country: PT (occurrence: PT)
  Receive Date: 20250404
  Receipt Date: 20250404
  Transmission Date: 20250717
  Serious: Yes (Other)
  Sender: NOVARTIS
  Company Number: None

PATIENT
  Age: 71 Year
  Sex: Female

DRUGS (1)
  1. MYCOPHENOLIC ACID [Suspect]
     Active Substance: MYCOPHENOLIC ACID
     Indication: Idiopathic interstitial pneumonia
     Dosage: 1080 MG, Q12H (1080MG 2X/DIA)
     Route: 048
     Dates: start: 20240807, end: 20241213

REACTIONS (3)
  - Faeces soft [Recovering/Resolving]
  - Frequent bowel movements [Recovering/Resolving]
  - Decreased appetite [Recovering/Resolving]

NARRATIVE: CASE EVENT DATE: 20240810
